FAERS Safety Report 25614812 (Version 1)
Quarter: 2025Q3

REPORT INFORMATION
  Report Type: Report from Study
  Country: US (occurrence: US)
  Receive Date: 20250729
  Receipt Date: 20250729
  Transmission Date: 20251021
  Serious: Yes (Other)
  Sender: ALEXION PHARMACEUTICALS
  Company Number: US-AstraZeneca-CH-00917940A

PATIENT
  Age: 84 Year
  Sex: Female
  Weight: 66 kg

DRUGS (13)
  1. CAPIVASERTIB [Suspect]
     Active Substance: CAPIVASERTIB
     Indication: Breast cancer female
     Dosage: 160 MILLIGRAM, Q12H
  2. VITAMIN D3 [Concomitant]
     Active Substance: CHOLECALCIFEROL
     Route: 065
  3. ASPIRIN [Concomitant]
     Active Substance: ASPIRIN
     Route: 065
  4. ATORVASTATIN CALCIUM [Concomitant]
     Active Substance: ATORVASTATIN CALCIUM
     Route: 065
  5. CARVEDILOL [Concomitant]
     Active Substance: CARVEDILOL
     Route: 065
  6. FULVESTRANT [Concomitant]
     Active Substance: FULVESTRANT
  7. ISOSORBIDE [Concomitant]
     Active Substance: ISOSORBIDE
     Route: 065
  8. KETOTIFEN [Concomitant]
     Active Substance: KETOTIFEN
     Route: 065
  9. LOPERAMIDE HYDROCHLORIDE [Concomitant]
     Active Substance: LOPERAMIDE HYDROCHLORIDE
     Route: 065
  10. LOSARTAN POTASSIUM [Concomitant]
     Active Substance: LOSARTAN POTASSIUM
     Route: 065
  11. MAGNESIUM [Concomitant]
     Active Substance: MAGNESIUM
     Route: 065
  12. METFORMIN HYDROCHLORIDE [Concomitant]
     Active Substance: METFORMIN HYDROCHLORIDE
     Route: 065
  13. PIOGLITAZONE [Concomitant]
     Active Substance: PIOGLITAZONE
     Route: 065

REACTIONS (2)
  - Burning sensation [Unknown]
  - Diabetes mellitus [Unknown]
